FAERS Safety Report 19554010 (Version 1)
Quarter: 2021Q3

REPORT INFORMATION
  Report Type: Other
  Country: US (occurrence: US)
  Receive Date: 20210715
  Receipt Date: 20210715
  Transmission Date: 20211014
  Serious: No
  Sender: FDA-Public Use
  Company Number: US-NEUROCRINE BIOSCIENCES INC.-2021NBI03729

PATIENT

DRUGS (3)
  1. HALDOL [Concomitant]
     Active Substance: HALOPERIDOL
     Dosage: INCREASED DOSE
     Dates: start: 20210708
  2. HALDOL [Concomitant]
     Active Substance: HALOPERIDOL
     Dosage: UNKNOWN DOSE
  3. INGREZZA [Suspect]
     Active Substance: VALBENAZINE
     Indication: SCHIZOAFFECTIVE DISORDER BIPOLAR TYPE
     Dosage: 40 MILLIGRAM, QD
     Route: 048
     Dates: start: 20210706, end: 20210709

REACTIONS (2)
  - Off label use [Unknown]
  - Vomiting [Unknown]

NARRATIVE: CASE EVENT DATE: 20210706
